FAERS Safety Report 8533911 (Version 6)
Quarter: 2018Q1

REPORT INFORMATION
  Report Type: Report from Study
  Country: CN (occurrence: CN)
  Receive Date: 20120427
  Receipt Date: 20180316
  Transmission Date: 20180509
  Serious: Yes (Death, Hospitalization)
  Sender: FDA-Public Use
  Company Number: CN-PFIZER INC-2012078870

PATIENT
  Age: 57 Year
  Sex: Male
  Weight: 62 kg

DRUGS (1)
  1. CRIZOTINIB [Suspect]
     Active Substance: CRIZOTINIB
     Indication: NASOPHARYNGEAL CANCER
     Dosage: 250 MG, 2X/DAY
     Route: 048
     Dates: start: 20120307, end: 20120318

REACTIONS (1)
  - Interstitial lung disease [Fatal]

NARRATIVE: CASE EVENT DATE: 20120319
